FAERS Safety Report 8164260-6 (Version None)
Quarter: 2012Q1

REPORT INFORMATION
  Report Type: 
  Country: None (occurrence: None)
  Receive Date: 20120224
  Receipt Date: 20120106
  Transmission Date: 20120608
  Serious: Yes (Hospitalization)
  Sender: FDA-Public Use
  Company Number: US-ASTRAZENECA-2012SE01219

PATIENT
  Age: 54 Year
  Sex: Male

DRUGS (5)
  1. PRAVASTATIN [Concomitant]
  2. ALLEGRA [Concomitant]
  3. VIMOVO [Suspect]
     Dosage: 500 MG NAPROXEN + 20 MG ESOMEPRAZOLE MAGNESIUM
     Route: 048
     Dates: start: 20111123
  4. LOTREL [Concomitant]
  5. TOPROL-XL [Concomitant]

REACTIONS (1)
  - PANCREATITIS ACUTE [None]
